FAERS Safety Report 8238059-6 (Version None)
Quarter: 2012Q1

REPORT INFORMATION
  Report Type: 
  Country: None (occurrence: None)
  Receive Date: 20120327
  Receipt Date: 20120320
  Transmission Date: 20120608
  Serious: Yes (Other)
  Sender: FDA-Public Use
  Company Number: US-GLAXOSMITHKLINE-A0970520A

PATIENT
  Age: 27 Year
  Sex: Male

DRUGS (2)
  1. PHENYTOIN [Suspect]
     Indication: CONVULSION
     Dosage: 200MG TWICE PER DAY
     Route: 048
     Dates: start: 20111001
  2. LAMICTAL XR [Suspect]
     Indication: CONVULSION
     Dosage: 200MG IN THE MORNING
     Route: 048

REACTIONS (6)
  - BLINDNESS [None]
  - FEELING ABNORMAL [None]
  - CONVULSION [None]
  - HEADACHE [None]
  - VOMITING [None]
  - EAR PAIN [None]
